FAERS Safety Report 5549564-5 (Version None)
Quarter: 2007Q4

REPORT INFORMATION
  Report Type: 
  Country: None (occurrence: None)
  Receive Date: 20071210
  Receipt Date: 20071126
  Transmission Date: 20080405
  Serious: Yes (Hospitalization)
  Sender: FDA-Public Use
  Company Number: 2007BI020023

PATIENT
  Age: 47 Year
  Sex: Male

DRUGS (1)
  1. NATALIZUMAB [Suspect]
     Indication: MULTIPLE SCLEROSIS
     Dosage: 300 MG; QM; IV
     Route: 042
     Dates: start: 20061222

REACTIONS (5)
  - ABASIA [None]
  - AMNESIA [None]
  - CONFUSIONAL STATE [None]
  - MULTIPLE SCLEROSIS [None]
  - URINARY INCONTINENCE [None]
